FAERS Safety Report 20361635 (Version 1)
Quarter: 2022Q1

REPORT INFORMATION
  Report Type: Spontaneous
  Country: US (occurrence: US)
  Receive Date: 20220121
  Receipt Date: 20220121
  Transmission Date: 20220423
  Serious: No
  Sender: FDA-Public Use
  Company Number: US-TORRENT-00011382

PATIENT
  Sex: Female

DRUGS (1)
  1. ZOLPIDEM TARTRATE [Suspect]
     Active Substance: ZOLPIDEM TARTRATE
     Indication: Product used for unknown indication
     Dosage: UNKNOWN
     Route: 065

REACTIONS (7)
  - Nausea [Unknown]
  - Dizziness [Unknown]
  - Crying [Unknown]
  - Vomiting [Unknown]
  - Abdominal pain upper [Unknown]
  - Panic attack [Unknown]
  - Nervousness [Unknown]
